FAERS Safety Report 20041759 (Version 4)
Quarter: 2022Q2

REPORT INFORMATION
  Report Type: Spontaneous
  Country: JP (occurrence: JP)
  Receive Date: 20211108
  Receipt Date: 20220630
  Transmission Date: 20220721
  Serious: Yes (Other)
  Sender: FDA-Public Use
  Company Number: JP-ONO-2020JP012587

PATIENT
  Age: 66 Year
  Sex: Female
  Weight: 59.5 kg

DRUGS (19)
  1. PARSABIV [Suspect]
     Active Substance: ETELCALCETIDE HYDROCHLORIDE
     Indication: Hyperparathyroidism secondary
     Dosage: 5 MILLIGRAM, Q56H
     Route: 010
     Dates: start: 20180626, end: 20180809
  2. PARSABIV [Suspect]
     Active Substance: ETELCALCETIDE HYDROCHLORIDE
     Dosage: 2.5 MILLIGRAM, Q56H
     Route: 010
     Dates: start: 20180811, end: 20200114
  3. PARSABIV [Suspect]
     Active Substance: ETELCALCETIDE HYDROCHLORIDE
     Dosage: 5 MILLIGRAM, Q56H
     Route: 010
     Dates: start: 20200116
  4. DARBEPOETIN ALFA [Concomitant]
     Active Substance: DARBEPOETIN ALFA
     Dosage: 20 MICROGRAM, QWK
     Route: 065
     Dates: end: 20210619
  5. DARBEPOETIN ALFA [Concomitant]
     Active Substance: DARBEPOETIN ALFA
     Dosage: 30 MICROGRAM, QWK
     Route: 065
     Dates: start: 20210626
  6. OXAROL [Concomitant]
     Active Substance: MAXACALCITOL
     Dosage: 2.5 MUG, Q56H
     Route: 065
     Dates: end: 20200229
  7. OXAROL [Concomitant]
     Active Substance: MAXACALCITOL
     Dosage: 5 MICROGRAM
     Route: 042
     Dates: start: 20200303, end: 20211030
  8. OXAROL [Concomitant]
     Active Substance: MAXACALCITOL
     Dosage: 5 MICROGRAM
     Route: 042
     Dates: start: 20211102, end: 20211120
  9. OXAROL [Concomitant]
     Active Substance: MAXACALCITOL
     Dosage: 2.5 MICROGRAM
     Route: 042
     Dates: start: 20211123
  10. FOSRENOL [Concomitant]
     Active Substance: LANTHANUM CARBONATE
     Dosage: 750 MG, EVERYDAY
     Route: 048
     Dates: end: 20200228
  11. FOSRENOL [Concomitant]
     Active Substance: LANTHANUM CARBONATE
     Dosage: 1500 MILLIGRAM, QD
     Route: 065
     Dates: start: 20200229
  12. IRON SUCROSE [Concomitant]
     Active Substance: IRON SUCROSE
     Dosage: 40 MILLIGRAM, QWK
     Route: 065
     Dates: start: 20180710, end: 20180731
  13. IRON SUCROSE [Concomitant]
     Active Substance: IRON SUCROSE
     Dosage: 80 MILLIGRAM, QWK
     Route: 065
     Dates: start: 20190727, end: 20190813
  14. IRON SUCROSE [Concomitant]
     Active Substance: IRON SUCROSE
     Dosage: 80 MILLIGRAM, QWK
     Route: 065
     Dates: start: 20200118, end: 20200204
  15. IRON SUCROSE [Concomitant]
     Active Substance: IRON SUCROSE
     Dosage: 80 MILLIGRAM, QWK
     Route: 065
     Dates: start: 20190824, end: 20190914
  16. IRON SUCROSE [Concomitant]
     Active Substance: IRON SUCROSE
     Dosage: 80 MILLIGRAM, QWK
     Route: 065
     Dates: start: 20200118, end: 20200204
  17. IRON SUCROSE [Concomitant]
     Active Substance: IRON SUCROSE
     Dosage: 40 MILLIGRAM, QWK
     Route: 065
     Dates: start: 20220129
  18. BIXALOMER [Concomitant]
     Active Substance: BIXALOMER
     Dosage: 1000 MG, EVERYDAY
     Route: 048
  19. SODIUM FERROUS CITRATE [Concomitant]
     Active Substance: SODIUM FERROUS CITRATE
     Dosage: 100 MILLIGRAM, QD
     Route: 065
     Dates: start: 20190423, end: 20190603

REACTIONS (4)
  - Rheumatoid arthritis [Recovering/Resolving]
  - Blood pressure decreased [Recovered/Resolved]
  - Hyperuricaemia [Recovering/Resolving]
  - Blood pressure decreased [Recovered/Resolved]

NARRATIVE: CASE EVENT DATE: 20190601
